FAERS Safety Report 15134478 (Version 2)
Quarter: 2018Q3

REPORT INFORMATION
  Report Type: Spontaneous
  Country: BR (occurrence: BR)
  Receive Date: 20180712
  Receipt Date: 20180723
  Transmission Date: 20181010
  Serious: Yes (Other)
  Sender: FDA-Public Use
  Company Number: BR-ABBVIE-18P-020-2416951-00

PATIENT
  Sex: Male

DRUGS (3)
  1. UNSPECIFIED EYE DROPS [Concomitant]
     Active Substance: UNSPECIFIED INGREDIENT
     Indication: OCULAR DISCOMFORT
  2. DEPAKENE [Suspect]
     Active Substance: VALPROIC ACID
     Indication: EPILEPSY
     Route: 065
     Dates: start: 2008
  3. UNSPECIFIED EYE DROPS [Concomitant]
     Active Substance: UNSPECIFIED INGREDIENT
     Indication: DRY EYE

REACTIONS (7)
  - Blindness [Unknown]
  - Ocular discomfort [Unknown]
  - Epilepsy [Unknown]
  - Eye complication associated with device [Unknown]
  - Product quality issue [Unknown]
  - Retinal detachment [Unknown]
  - Blindness unilateral [Unknown]
